FAERS Safety Report 25999616 (Version 1)
Quarter: 2025Q4

REPORT INFORMATION
  Report Type: Spontaneous
  Country: US (occurrence: US)
  Receive Date: 20251105
  Receipt Date: 20251105
  Transmission Date: 20260117
  Serious: No
  Sender: Tarsus Pharmaceuticals
  Company Number: US-TARSUS PHARMACEUTICALS-TSP-US-2025-001032

PATIENT

DRUGS (2)
  1. XDEMVY [Suspect]
     Active Substance: LOTILANER
     Indication: Arthropod infestation
     Dosage: 1 DROP, BID
     Route: 047
     Dates: start: 20250815, end: 20250918
  2. XDEMVY [Suspect]
     Active Substance: LOTILANER
     Dosage: 1 DROP, BID
     Route: 047
     Dates: start: 20250930

REACTIONS (3)
  - Therapeutic product effect incomplete [Unknown]
  - Product use issue [Unknown]
  - Therapy interrupted [Unknown]

NARRATIVE: CASE EVENT DATE: 20250918
